FAERS Safety Report 7381520-7 (Version None)
Quarter: 2011Q1

REPORT INFORMATION
  Report Type: 
  Country: None (occurrence: None)
  Receive Date: 20110329
  Receipt Date: 20110323
  Transmission Date: 20110831
  Serious: Yes (Hospitalization)
  Sender: FDA-Public Use
  Company Number: FR-MERCK-1012FRA00089B1

PATIENT
  Sex: Male
  Weight: 3 kg

DRUGS (3)
  1. ENOXAPARIN SODIUM [Concomitant]
     Route: 065
  2. ISENTRESS [Suspect]
     Route: 065
  3. LAMIVUDINE AND ZIDOVUDINE [Concomitant]
     Route: 065

REACTIONS (1)
  - PREMATURE BABY [None]
